FAERS Safety Report 4951635-9 (Version None)
Quarter: 2006Q1

REPORT INFORMATION
  Report Type: 
  Country: None (occurrence: None)
  Receive Date: 20060317
  Receipt Date: 20060307
  Transmission Date: 20060701
  Serious: Yes (Death)
  Sender: FDA-Public Use
  Company Number: 2006014922

PATIENT
  Age: 85 Year
  Sex: Female
  Weight: 70 kg

DRUGS (16)
  1. LYRICA [Suspect]
     Indication: NEURALGIA
     Dosage: 75 MG (75 MG, 1 IN 1 D), ORAL
     Route: 048
     Dates: start: 20060117
  2. AMITRIPTYLINE HCL [Concomitant]
  3. RAMIPRIL [Concomitant]
  4. CARVEDILOL [Concomitant]
  5. NEXIUM [Concomitant]
  6. LOCOL (FLUVASTATIN SODIUM) [Concomitant]
  7. ALLOLPURINOL (ALLOPURINOL) [Concomitant]
  8. TOREM (TORASEMIDE) [Concomitant]
  9. ACETYLCYSTEINE [Concomitant]
  10. BERLOSIN (METAMIZOLE SODIUM) [Concomitant]
  11. XIPAMIDE (XIPAMIDE) [Concomitant]
  12. OSYROL (SPIRONOLACTONE) [Concomitant]
  13. NORVASC [Concomitant]
  14. OXYCODONE HCL [Concomitant]
  15. ALPROSTADIL [Concomitant]
  16. ARTHROTEC [Concomitant]

REACTIONS (3)
  - ASPIRATION [None]
  - HYPOTENSION [None]
  - ILEUS PARALYTIC [None]
